FAERS Safety Report 5993905-1 (Version None)
Quarter: 2008Q4

REPORT INFORMATION
  Report Type: 
  Country: None (occurrence: None)
  Receive Date: 20081212
  Receipt Date: 20081110
  Transmission Date: 20090506
  Serious: No
  Sender: FDA-Public Use
  Company Number: US-ABBOTT-08P-163-0465600-00

PATIENT
  Sex: Male
  Weight: 52.21 kg

DRUGS (14)
  1. HUMIRA [Suspect]
     Indication: RHEUMATOID ARTHRITIS
     Route: 058
     Dates: start: 20080222
  2. HUMIRA [Suspect]
     Indication: PSORIASIS
     Route: 058
     Dates: start: 20080222
  3. HUMIRA [Suspect]
     Indication: PSORIATIC ARTHROPATHY
  4. IRON [Concomitant]
     Indication: BLOOD IRON DECREASED
     Route: 042
  5. IRON [Concomitant]
     Route: 048
  6. METHOTREXATE [Concomitant]
     Indication: ARTHRITIS
  7. FOLIC ACID [Concomitant]
     Indication: ARTHRITIS
  8. CELECOXIB [Concomitant]
     Indication: ARTHRITIS
  9. TRAMADOL HCL [Concomitant]
     Indication: PAIN
  10. ESOMEPRAZOLE MAGNESIUM [Concomitant]
     Indication: GASTRIC DISORDER
  11. DOXAZOSIN MESYLATE [Concomitant]
     Indication: HYPERTENSION
  12. DULOXETINE HYDROCHLORIDE [Concomitant]
     Indication: DEPRESSION
  13. CLORONEX [Concomitant]
     Indication: DRUG USE FOR UNKNOWN INDICATION
  14. FENTANYL-100 [Concomitant]
     Indication: ARTHRALGIA

REACTIONS (13)
  - BLOOD GLUCOSE INCREASED [None]
  - CHILLS [None]
  - HAEMOGLOBIN DECREASED [None]
  - HEADACHE [None]
  - HYPERHIDROSIS [None]
  - INFLUENZA LIKE ILLNESS [None]
  - INJECTION SITE ERYTHEMA [None]
  - INJECTION SITE WARMTH [None]
  - MALAISE [None]
  - PAIN [None]
  - PYREXIA [None]
  - SWELLING [None]
  - WEIGHT DECREASED [None]
